FAERS Safety Report 8004763-8 (Version None)
Quarter: 2011Q4

REPORT INFORMATION
  Report Type: 
  Country: None (occurrence: None)
  Receive Date: 20111223
  Receipt Date: 20111212
  Transmission Date: 20120403
  Serious: Yes (Hospitalization, Other)
  Sender: FDA-Public Use
  Company Number: GB-NOVOPROD-341204

PATIENT

DRUGS (5)
  1. NOVOLOG [Suspect]
     Indication: TYPE 2 DIABETES MELLITUS
     Dosage: 48 IU MORNING + 36 IU EVENING
     Route: 058
  2. ACE-BLOC [Concomitant]
  3. BLOCK B [Concomitant]
  4. NOVOLOG [Suspect]
     Dosage: 40 IU MORNING
  5. GLUCAGEN [Suspect]
     Indication: HYPOGLYCAEMIA
     Route: 030

REACTIONS (3)
  - DRUG INEFFECTIVE [None]
  - ISCHAEMIC STROKE [None]
  - HYPOGLYCAEMIC UNCONSCIOUSNESS [None]
